FAERS Safety Report 25888258 (Version 1)
Quarter: 2025Q4

REPORT INFORMATION
  Report Type: Spontaneous
  Country: US (occurrence: US)
  Receive Date: 20251007
  Receipt Date: 20251007
  Transmission Date: 20260117
  Serious: Yes (Other)
  Sender: STRIDES
  Company Number: US-STRIDES PHARMA UK LTD.-2025SP004306

PATIENT
  Age: 8 Decade
  Sex: Female

DRUGS (3)
  1. PREDNISONE [Suspect]
     Active Substance: PREDNISONE
     Indication: Giant cell arteritis
     Dosage: 60 MILLIGRAM, QD
     Route: 048
  2. PREDNISONE [Suspect]
     Active Substance: PREDNISONE
     Dosage: 10 MILLIGRAMS, QD, DOSE TAPERED
     Route: 048
  3. PREDNISONE [Suspect]
     Active Substance: PREDNISONE
     Dosage: 40 MILLIGRAM, QD, DOSE INCREASED
     Route: 048

REACTIONS (3)
  - Eye infection toxoplasmal [Recovered/Resolved]
  - Toxoplasmosis [Recovered/Resolved]
  - Off label use [Unknown]
